FAERS Safety Report 9687950 (Version 1)
Quarter: 2013Q4

REPORT INFORMATION
  Report Type: Spontaneous
  Country: AU (occurrence: None)
  Receive Date: 20131112
  Receipt Date: 20131112
  Transmission Date: 20140711
  Serious: No
  Sender: FDA-Public Use
  Company Number: 2013AP009549

PATIENT
  Age: 82 Year
  Sex: Female

DRUGS (2)
  1. CLOPIDOGREL [Suspect]
     Indication: MYOCARDIAL ISCHAEMIA
     Dosage: 75 MG;UNKNOWN; QD
  2. ASPIRIN [Suspect]
     Dosage: 100 MG; UNKNOWN; QD

REACTIONS (2)
  - Cholecystitis infective [None]
  - Platelet dysfunction [None]
